FAERS Safety Report 6234786-0 (Version None)
Quarter: 2009Q2

REPORT INFORMATION
  Report Type: 
  Country: None (occurrence: None)
  Receive Date: 20090618
  Receipt Date: 20090610
  Transmission Date: 20091009
  Serious: Yes (Hospitalization)
  Sender: FDA-Public Use
  Company Number: PHHY2009BE14018

PATIENT
  Sex: Male
  Weight: 82 kg

DRUGS (5)
  1. ALISKIREN ALI+ [Suspect]
     Indication: HYPERTENSION
     Dosage: 150 MG DAILY
     Route: 048
     Dates: start: 20081125, end: 20081223
  2. CALCIUM ACETATE [Concomitant]
     Indication: RENAL FAILURE CHRONIC
     Dosage: 800 MG
  3. SPIRIVA [Concomitant]
     Indication: CHRONIC OBSTRUCTIVE PULMONARY DISEASE
     Dosage: 1 DF, QD
  4. AMLOR [Concomitant]
     Indication: HYPERTENSION
     Dosage: 5 MG, QD
  5. SERETIDE [Concomitant]
     Indication: CHRONIC OBSTRUCTIVE PULMONARY DISEASE

REACTIONS (7)
  - BILE DUCT STONE [None]
  - CHOLECYSTECTOMY [None]
  - CHOLECYSTITIS [None]
  - ENDOSCOPIC RETROGRADE CHOLANGIOPANCREATOGRAPHY [None]
  - HYPOTENSION [None]
  - PAIN [None]
  - RENAL FAILURE ACUTE [None]
